FAERS Safety Report 10392271 (Version 5)
Quarter: 2014Q4

REPORT INFORMATION
  Report Type: Report from Study
  Country: SI (occurrence: SI)
  Receive Date: 20140819
  Receipt Date: 20141024
  Transmission Date: 20150528
  Serious: Yes (Hospitalization, Other)
  Sender: FDA-Public Use
  Company Number: SI-PFIZER INC-2014120939

PATIENT
  Age: 51 Year
  Sex: Female

DRUGS (18)
  1. PANTOPRAZOLE [Concomitant]
     Active Substance: PANTOPRAZOLE SODIUM
     Dosage: UNK
     Dates: start: 20131130
  2. FILGRASTIM [Concomitant]
     Active Substance: FILGRASTIM
     Dosage: UNK
     Dates: start: 20140207, end: 20140212
  3. TORECAN [Concomitant]
     Active Substance: THIETHYLPERAZINE MALATE
     Dosage: UNK
     Dates: start: 20140118
  4. METHYLPREDNISOLONE. [Concomitant]
     Active Substance: METHYLPREDNISOLONE
     Dosage: UNK
     Dates: start: 20140117, end: 20140320
  5. SEVREDOL [Suspect]
     Active Substance: MORPHINE
     Indication: BREAST CANCER
     Dosage: 10 MG, 3X/DAY
     Route: 065
     Dates: start: 20140117, end: 20140126
  6. PERTUZUMAB [Suspect]
     Active Substance: PERTUZUMAB
     Dosage: 420 MG, TIW
     Route: 042
     Dates: start: 20140117
  7. TRASTUZUMAB [Suspect]
     Active Substance: TRASTUZUMAB
     Indication: BREAST CANCER
     Dosage: 282 MG, TIW
     Route: 042
     Dates: start: 20140117
  8. EPUFEN [Suspect]
     Active Substance: FENTANYL
     Dosage: 25 UG, DAILY
     Route: 065
     Dates: start: 20140124, end: 20140127
  9. DEXAMETHASONE. [Concomitant]
     Active Substance: DEXAMETHASONE
     Dosage: UNK
     Dates: start: 20140206, end: 20140206
  10. TARGINACT [Suspect]
     Active Substance: NALOXONE HYDROCHLORIDE\OXYCODONE HYDROCHLORIDE
     Indication: CANCER PAIN
     Dosage: 40/20 MG DAILY
     Route: 065
     Dates: start: 20140127
  11. PERTUZUMAB [Suspect]
     Active Substance: PERTUZUMAB
     Indication: BREAST CANCER
     Dosage: 840 MG, SINGLE
     Route: 042
     Dates: start: 20140117, end: 20140117
  12. MORPHINE [Concomitant]
     Active Substance: MORPHINE
     Dosage: UNK
     Dates: start: 20140124
  13. VIROLEX [Concomitant]
     Active Substance: ACYCLOVIR
     Dosage: UNK UG, DAILY
     Dates: start: 20140124, end: 20140206
  14. NOLPAZA [Concomitant]
     Active Substance: PANTOPRAZOLE SODIUM
     Dosage: UNK
  15. DOCETAXEL. [Suspect]
     Active Substance: DOCETAXEL
     Indication: BREAST CANCER
     Dosage: 111 MG, TIW
     Route: 042
     Dates: start: 20140119
  16. EPUFEN [Suspect]
     Active Substance: FENTANYL
     Indication: BREAST CANCER
     Dosage: 25 UG, DAILY
     Route: 065
     Dates: start: 20140115, end: 20140117
  17. EPUFEN [Suspect]
     Active Substance: FENTANYL
     Dosage: 12.5 UG, DAILY
     Route: 065
     Dates: start: 20140117, end: 20140124
  18. THIETHYLPERAZINE [Concomitant]
     Active Substance: THIETHYLPERAZINE
     Dosage: UNK
     Dates: start: 20140118

REACTIONS (4)
  - Neutropenia [Unknown]
  - Pain [Unknown]
  - Vomiting [Recovered/Resolved]
  - Vomiting [Recovered/Resolved]

NARRATIVE: CASE EVENT DATE: 20140123
